FAERS Safety Report 7835517-0 (Version None)
Quarter: 2011Q4

REPORT INFORMATION
  Report Type: 
  Country: None (occurrence: None)
  Receive Date: 20111024
  Receipt Date: 20111012
  Transmission Date: 20120403
  Serious: Yes (Hospitalization)
  Sender: FDA-Public Use
  Company Number: PHHO2010FR10634

PATIENT
  Sex: Male
  Weight: 75 kg

DRUGS (11)
  1. SIMULECT [Suspect]
     Indication: RENAL TRANSPLANT
  2. ASPIRIN [Concomitant]
     Dosage: UNK
  3. PREDNISONE [Suspect]
     Indication: RENAL TRANSPLANT
     Dosage: 7.5
     Route: 048
     Dates: start: 20100605
  4. XANAX [Concomitant]
     Dosage: UNK
  5. PANTOPRAZOLE [Concomitant]
     Dosage: UNK
  6. ACEBUTOLOL HYDROCHLORIDE [Concomitant]
     Dosage: UNK
  7. MYCOPHENOLATE MOFETIL (CELLCEPT) [Suspect]
     Indication: RENAL TRANSPLANT
     Dosage: 3 G
     Route: 048
     Dates: start: 20100603
  8. VALGANCICLOVIR [Concomitant]
     Dosage: UNK
  9. BACTRIM [Concomitant]
  10. NEORAL [Suspect]
     Indication: RENAL TRANSPLANT
     Dosage: UNK
     Route: 048
     Dates: start: 20100605
  11. AMLODIPINE BESYLATE [Concomitant]
     Dosage: UNK

REACTIONS (2)
  - RENAL FAILURE ACUTE [None]
  - LYMPHOCELE [None]
